FAERS Safety Report 9943935 (Version 1)
Quarter: 2014Q1

REPORT INFORMATION
  Report Type: Spontaneous
  Country: US (occurrence: US)
  Receive Date: 20140303
  Receipt Date: 20140303
  Transmission Date: 20141002
  Serious: No
  Sender: FDA-Public Use
  Company Number: US-GILEAD-2012-0060588

PATIENT
  Sex: Male

DRUGS (13)
  1. RANEXA [Suspect]
     Indication: PRODUCT USED FOR UNKNOWN INDICATION
     Dosage: 500 MG, UNK
     Route: 048
  2. ASPIRIN [Concomitant]
     Dosage: UNK
  3. DIAZEPAM [Concomitant]
     Dosage: UNK
  4. GABAPENTIN [Concomitant]
     Dosage: UNK
  5. GLUCOVANCE [Concomitant]
     Dosage: UNK
  6. LEVOXYL [Concomitant]
     Dosage: UNK
  7. LIPITOR [Concomitant]
     Dosage: UNK
  8. LOSARTAN/HCT [Concomitant]
     Dosage: UNK
  9. MOBIC [Concomitant]
     Dosage: UNK
  10. NITROGLYCERINE [Concomitant]
  11. NYSTATIN W/TRIAMCINOLONE           /01760101/ [Concomitant]
     Dosage: UNK
  12. PLAVIX [Concomitant]
     Dosage: UNK
  13. ZANTAC [Concomitant]
     Dosage: UNK

REACTIONS (1)
  - Skin exfoliation [Unknown]
